FAERS Safety Report 8411326-9 (Version None)
Quarter: 2012Q2

REPORT INFORMATION
  Report Type: 
  Country: None (occurrence: None)
  Receive Date: 20120605
  Receipt Date: 20120529
  Transmission Date: 20120825
  Serious: Yes (Other)
  Sender: FDA-Public Use
  Company Number: US-PFIZER INC-2012129241

PATIENT
  Sex: Female
  Weight: 62.132 kg

DRUGS (8)
  1. ESTRACE [Suspect]
     Dosage: UNK
     Dates: start: 20110801, end: 20110801
  2. ESTRING [Suspect]
     Indication: VULVITIS
     Dosage: 2 MG, UNK
     Route: 067
     Dates: start: 20110701, end: 20110701
  3. NEXIUM [Concomitant]
     Dosage: UNK
  4. IBUPROFEN (ADVIL) [Concomitant]
     Dosage: UNK, AS NEEDED
  5. AMBIEN [Concomitant]
     Dosage: UNK
  6. ESTRING [Suspect]
     Dosage: UNK
     Route: 067
     Dates: start: 20120201, end: 20120501
  7. ESTRING [Suspect]
     Dosage: UNK
     Route: 067
     Dates: start: 20110901, end: 20111201
  8. ACETYLSALICYLIC ACID [Concomitant]
     Dosage: UNK, AS NEEDED

REACTIONS (8)
  - SKIN DISORDER [None]
  - VULVOVAGINAL PRURITUS [None]
  - BUNION [None]
  - VULVOVAGINAL MYCOTIC INFECTION [None]
  - CIRCUMSTANCE OR INFORMATION CAPABLE OF LEADING TO MEDICATION ERROR [None]
  - PAIN OF SKIN [None]
  - APPLICATION SITE PAIN [None]
  - SKIN LESION [None]
